FAERS Safety Report 23124961 (Version 4)
Quarter: 2024Q4

REPORT INFORMATION
  Report Type: Report from Study
  Country: US (occurrence: US)
  Receive Date: 20231030
  Receipt Date: 20241105
  Transmission Date: 20250115
  Serious: Yes (Hospitalization)
  Sender: RECORDATI
  Company Number: US-RECORDATI-2022000668

PATIENT

DRUGS (32)
  1. ISTURISA [Suspect]
     Active Substance: OSILODROSTAT PHOSPHATE
     Indication: Cushing^s syndrome
     Dosage: 2 MILLIGRAM, BID
     Route: 048
     Dates: start: 20220121, end: 20220205
  2. ISTURISA [Suspect]
     Active Substance: OSILODROSTAT PHOSPHATE
     Dosage: 1 MILLIGRAM, BID
     Route: 048
  3. ISTURISA [Suspect]
     Active Substance: OSILODROSTAT PHOSPHATE
     Dosage: 1 MILLIGRAM, BID
     Route: 048
     Dates: end: 20241023
  4. TRELEGY ELLIPTA [Concomitant]
     Active Substance: FLUTICASONE FUROATE\UMECLIDINIUM BROMIDE\VILANTEROL TRIFENATATE
     Indication: Chronic obstructive pulmonary disease
     Dosage: 200-62.5-25, BID, INHALATION AEROSOL
     Dates: start: 20210119
  5. LEVOTHYROXINE SODIUM [Concomitant]
     Active Substance: LEVOTHYROXINE SODIUM
     Indication: Hypothyroidism
     Dosage: 100 MICROGRAM, QD, TABLET 10
     Route: 048
     Dates: start: 20200119
  6. LISINOPRIL [Concomitant]
     Active Substance: LISINOPRIL
     Indication: Hypertension
     Dosage: 40 MILLIGRAM, QD, TABLET 40 MG
     Route: 048
     Dates: start: 20200119
  7. PANTOPRAZOLE SODIUM [Concomitant]
     Active Substance: PANTOPRAZOLE SODIUM
     Indication: Gastrooesophageal reflux disease
     Dosage: 40 MILLIGRAM, QD, TABLET DEL
     Route: 048
     Dates: start: 20200119
  8. METOPROLOL TARTRATE [Concomitant]
     Active Substance: METOPROLOL TARTRATE
     Indication: Hypertension
     Dosage: 25 MILLIGRAM, BID, TABLET 25
     Route: 048
     Dates: start: 20200119
  9. ROSUVASTATIN CALCIUM [Concomitant]
     Active Substance: ROSUVASTATIN CALCIUM
     Indication: Blood cholesterol increased
     Dosage: 40 MILLIGRAM, EVERY DAY AT BEDTIME TABLET 40
     Route: 048
     Dates: start: 20200119
  10. NIACIN [Concomitant]
     Active Substance: NIACIN
     Indication: Blood cholesterol increased
     Dosage: 1000 MILLIGRAM, BID, TABLET 500 MG
     Route: 048
     Dates: start: 20200119
  11. NIACIN [Concomitant]
     Active Substance: NIACIN
     Dosage: 500 MILLIGRAM
  12. FUROSEMIDE [Concomitant]
     Active Substance: FUROSEMIDE
     Indication: Hypertension
     Dosage: 40 MILLIGRAM, QD
     Route: 065
     Dates: end: 20210118
  13. FUROSEMIDE [Concomitant]
     Active Substance: FUROSEMIDE
     Dosage: 80 MG, QD, TABLET 80 MG
     Route: 048
     Dates: start: 20210119
  14. POTASSIUM CHLORIDE [Concomitant]
     Active Substance: POTASSIUM CHLORIDE
     Indication: Hypokalaemia
     Dosage: 10 MILLIEQUIVALENT, BID (EXTENDEDE RELEASE FORMULATION)CAPSULE
     Route: 048
     Dates: start: 20210119
  15. NOVOLIN R [Concomitant]
     Active Substance: INSULIN HUMAN
     Indication: Blood glucose increased
     Dosage: 40 INTERNATIONAL UNIT, QD
     Route: 065
  16. NOVOLIN R [Concomitant]
     Active Substance: INSULIN HUMAN
     Dosage: 100 UNIT/ML, QID INJECTION SOLUTION 100 UNITS
     Dates: start: 20200119
  17. NOVOLIN N [Concomitant]
     Active Substance: INSULIN HUMAN
     Indication: Blood glucose increased
     Dosage: 100 UNIT/ML, BID, SUSPENSION 1
     Route: 058
     Dates: start: 20200119
  18. GABAPENTIN [Concomitant]
     Active Substance: GABAPENTIN
     Indication: Neuropathy peripheral
     Dosage: 800 MILLIGRAM, QID, TABLET 800 MG
     Route: 048
     Dates: start: 20200119
  19. METFORMIN HYDROCHLORIDE [Concomitant]
     Active Substance: METFORMIN HYDROCHLORIDE
     Indication: Diabetes mellitus
     Dosage: 500 MILLIGRAM, BID, TABLET 500 MG
     Route: 048
     Dates: start: 20200119
  20. ACETAMINOPHEN\HYDROCODONE [Concomitant]
     Active Substance: ACETAMINOPHEN\HYDROCODONE
     Indication: Neuralgia
     Dosage: 10/325 (UNITS UNSPECIFIED), QID
     Route: 065
     Dates: end: 20211118
  21. ACETAMINOPHEN\HYDROCODONE [Concomitant]
     Active Substance: ACETAMINOPHEN\HYDROCODONE
     Dosage: 7.5/325 MG, QID
     Route: 048
     Dates: start: 20211119
  22. VITAMINS [Concomitant]
     Active Substance: VITAMINS
     Indication: Hypovitaminosis
     Dosage: 1 DOSAGE FORM, QD, TABLET
     Route: 048
     Dates: start: 20210119
  23. VITAMIN E [Concomitant]
     Active Substance: .ALPHA.-TOCOPHEROL
     Indication: Hypovitaminosis
     Dosage: 45 MILLIGRAM, QD, KP CAPSULE 45 MG (10)
     Route: 048
     Dates: start: 20200119
  24. FISH OIL [Concomitant]
     Active Substance: FISH OIL
     Indication: Cardiac disorder
     Dosage: 1000 MILLIGRAM, BID, CAPSULE 1000 MG
     Route: 048
     Dates: start: 20200119
  25. ASPIRIN [Concomitant]
     Active Substance: ASPIRIN
     Indication: Cardiac disorder
     Dosage: 81 MILLIGRAM, QD, TABLET DELAYED RELEASE
     Route: 048
     Dates: start: 20220209
  26. ALBUTEROL SULFATE [Concomitant]
     Active Substance: ALBUTEROL SULFATE
     Indication: Chronic obstructive pulmonary disease
     Dosage: 1.25 MG/3ML EVERY 6 HOURS AS NEEDED
     Dates: start: 20220209
  27. GLIPIZIDE [Concomitant]
     Active Substance: GLIPIZIDE
     Indication: Blood glucose increased
     Dosage: 5 MILLIGRAM, BID, TABLET 5 MG
     Route: 048
     Dates: start: 20220209
  28. FENOFIBRATE [Concomitant]
     Active Substance: FENOFIBRATE
     Indication: Blood triglycerides abnormal
     Dosage: 145 MILLIGRAM, QD, TABLET 145 MG
     Route: 048
     Dates: start: 20220209
  29. ZOFRAN [Concomitant]
     Active Substance: ONDANSETRON HYDROCHLORIDE
     Indication: Product used for unknown indication
     Dosage: 8 MG, PRN, TABLET 8 MG
     Route: 048
     Dates: start: 20220224
  30. ALBUTEROL SULFATE [Concomitant]
     Active Substance: ALBUTEROL SULFATE
     Indication: Product used for unknown indication
     Dosage: 108 (90 BASE), Q4H
     Dates: start: 20200624
  31. HYDROCORTISONE [Concomitant]
     Active Substance: HYDROCORTISONE
     Indication: Product used for unknown indication
     Dosage: 10 MILLIGRAM
     Route: 065
     Dates: end: 20220222
  32. HYDROCORTISONE [Concomitant]
     Active Substance: HYDROCORTISONE
     Dosage: 20 MG, QD, TABLET 10 MG
     Route: 048
     Dates: start: 20220223

REACTIONS (9)
  - Gastrointestinal disorder [Unknown]
  - Respiratory disorder [Unknown]
  - Blood glucose increased [Unknown]
  - COVID-19 [Unknown]
  - COVID-19 [Unknown]
  - Blood glucose decreased [Unknown]
  - Urinary tract infection [Recovering/Resolving]
  - Urinary tract infection [Unknown]
  - Urinary tract infection [Not Recovered/Not Resolved]

NARRATIVE: CASE EVENT DATE: 20220101
